FAERS Safety Report 5712347-7 (Version None)
Quarter: 2008Q2

REPORT INFORMATION
  Report Type: 
  Country: None (occurrence: None)
  Receive Date: 20080421
  Receipt Date: 20080421
  Transmission Date: 20081010
  Serious: Yes (Other)
  Sender: FDA-Public Use
  Company Number: None

PATIENT
  Age: 22 Year
  Sex: Female
  Weight: 86.4 kg

DRUGS (1)
  1. INDOMETHACIN 25MG CAP [Suspect]
     Indication: BACK INJURY
     Dosage: 50MG Q 8 HOURS PO
     Route: 048
     Dates: start: 20080420, end: 20080420

REACTIONS (4)
  - ABDOMINAL PAIN UPPER [None]
  - DIARRHOEA [None]
  - NAUSEA [None]
  - VOMITING [None]
